FAERS Safety Report 21239104 (Version 1)
Quarter: 2022Q3

REPORT INFORMATION
  Report Type: Spontaneous
  Country: FR (occurrence: FR)
  Receive Date: 20220822
  Receipt Date: 20220822
  Transmission Date: 20221027
  Serious: Yes (Hospitalization, Other)
  Sender: FDA-Public Use
  Company Number: FR-EMA-DD-20220722-7182781-093338

PATIENT
  Age: 82 Year
  Sex: Male

DRUGS (13)
  1. CLOZAPINE [Suspect]
     Active Substance: CLOZAPINE
     Indication: Senile dementia
     Dosage: 25 MG, QD
     Route: 048
     Dates: start: 20050802
  2. CLOZAPINE [Suspect]
     Active Substance: CLOZAPINE
     Indication: Confusional state
     Dosage: 25 MG, QD
     Route: 048
     Dates: start: 20050928
  3. ZOLPIDEM TARTRATE [Suspect]
     Active Substance: ZOLPIDEM TARTRATE
     Indication: Senile dementia
     Dosage: 10 MG, QD
     Route: 048
     Dates: start: 20050802
  4. ZOLPIDEM TARTRATE [Suspect]
     Active Substance: ZOLPIDEM TARTRATE
     Indication: Confusional state
     Dosage: 10 MG, QD
     Route: 048
     Dates: start: 20050928
  5. LORMETAZEPAM [Suspect]
     Active Substance: LORMETAZEPAM
     Indication: Senile dementia
     Dosage: 1 MG, QD
     Route: 048
     Dates: start: 20050923, end: 20050928
  6. LORMETAZEPAM [Suspect]
     Active Substance: LORMETAZEPAM
     Indication: Confusional state
  7. VALIUM [Suspect]
     Active Substance: DIAZEPAM
     Indication: Senile dementia
     Dosage: 20 DF, QD, ~STRENGTH REPORTED AS 2MG/5ML, SYRUP
     Route: 048
     Dates: start: 20050917, end: 20050928
  8. VALIUM [Suspect]
     Active Substance: DIAZEPAM
     Indication: Confusional state
  9. SEROPRAM (CITALOPRAM HYDROBROMIDE) [Suspect]
     Active Substance: CITALOPRAM HYDROBROMIDE
     Indication: Senile dementia
     Dosage: 40 MG, QD
     Route: 048
     Dates: start: 20050802
  10. SEROPRAM (CITALOPRAM HYDROBROMIDE) [Suspect]
     Active Substance: CITALOPRAM HYDROBROMIDE
     Indication: Confusional state
     Dosage: 40 MG, QD
     Route: 048
     Dates: start: 20050928
  11. XANAX [Suspect]
     Active Substance: ALPRAZOLAM
     Indication: Senile dementia
     Dosage: 0.5 MG, QD
     Route: 048
     Dates: start: 20050928
  12. XANAX [Suspect]
     Active Substance: ALPRAZOLAM
     Indication: Confusional state
  13. CASODEX [Suspect]
     Active Substance: BICALUTAMIDE
     Indication: Prostate cancer
     Dosage: UNK
     Route: 065

REACTIONS (12)
  - Meningitis listeria [Recovered/Resolved with Sequelae]
  - CSF red blood cell count positive [Recovered/Resolved with Sequelae]
  - CSF cell count increased [Recovered/Resolved with Sequelae]
  - CSF protein increased [Recovered/Resolved with Sequelae]
  - CSF lymphocyte count increased [Unknown]
  - Inflammation [Unknown]
  - Lumbar puncture [Unknown]
  - Condition aggravated [Recovered/Resolved with Sequelae]
  - Cognitive disorder [Unknown]
  - Meningitis aseptic [Recovered/Resolved with Sequelae]
  - Hallucination [Unknown]
  - Myoclonus [Unknown]

NARRATIVE: CASE EVENT DATE: 20050901
